FAERS Safety Report 6065053-6 (Version None)
Quarter: 2009Q1

REPORT INFORMATION
  Report Type: 
  Country: None (occurrence: None)
  Receive Date: 20090204
  Receipt Date: 20090123
  Transmission Date: 20090719
  Serious: Yes (Other)
  Sender: FDA-Public Use
  Company Number: US-PFIZER INC-2008096651

PATIENT
  Sex: Female
  Weight: 76.363 kg

DRUGS (1)
  1. DILANTIN [Suspect]
     Indication: CONVULSION
     Dosage: 100 MG, 1X/DAY
     Route: 048
     Dates: start: 19750101

REACTIONS (3)
  - AURA [None]
  - DRUG INEFFECTIVE [None]
  - HYPOTHYROIDISM [None]
